FAERS Safety Report 6011770-3 (Version None)
Quarter: 2008Q4

REPORT INFORMATION
  Report Type: 
  Country: None (occurrence: None)
  Receive Date: 20081218
  Receipt Date: 20080407
  Transmission Date: 20090506
  Serious: No
  Sender: FDA-Public Use
  Company Number: US-ABBOTT-08P-163-0445854-00

PATIENT
  Sex: Female
  Weight: 70.37 kg

DRUGS (3)
  1. MERIDIA [Suspect]
     Indication: WEIGHT CONTROL
     Dates: start: 20080201, end: 20080328
  2. MERIDIA [Suspect]
     Dates: start: 20080402
  3. PROFGESTERINE SUPP [Concomitant]
     Indication: DRUG USE FOR UNKNOWN INDICATION
     Route: 048

REACTIONS (2)
  - DIARRHOEA [None]
  - DRUG DOSE OMISSION [None]
